FAERS Safety Report 17441632 (Version 1)
Quarter: 2020Q1

REPORT INFORMATION
  Report Type: Spontaneous
  Country: US (occurrence: US)
  Receive Date: 20200220
  Receipt Date: 20200220
  Transmission Date: 20200409
  Serious: No
  Sender: FDA-Public Use
  Company Number: US-009507513-2001USA008178

PATIENT
  Age: 17 Month
  Sex: Male

DRUGS (3)
  1. PROVENTIL [Suspect]
     Active Substance: ALBUTEROL
     Indication: RESPIRATORY DISTRESS
     Dosage: 2 PUFFS OF METERED-DOSE INHLAER (MDI)
  2. ACETAMINOPHEN. [Concomitant]
     Active Substance: ACETAMINOPHEN
     Indication: RESPIRATORY DISTRESS
     Dosage: 15 MILLIGRAM/KILOGRAM, BY MOUTH
     Route: 048
  3. IBUPROFEN. [Concomitant]
     Active Substance: IBUPROFEN
     Indication: RESPIRATORY DISTRESS
     Dosage: BY MOUTH
     Route: 048

REACTIONS (1)
  - Off label use [Unknown]
